FAERS Safety Report 16570467 (Version 1)
Quarter: 2019Q3

REPORT INFORMATION
  Report Type: Spontaneous
  Country: US (occurrence: US)
  Receive Date: 20190710
  Receipt Date: 20190710
  Transmission Date: 20191004
  Serious: No
  Sender: FDA-Public Use
  Company Number: None

PATIENT
  Age: 36 Year
  Sex: Female
  Weight: 61.65 kg

DRUGS (1)
  1. RODAN FIELDS UNBLEMISH REGIMEN FOR ACNE, BLEMISHES AND BREAKOUTS [Suspect]
     Active Substance: BENZOYL PEROXIDE\SULFUR\TITANIUM DIOXIDE\ZINC OXIDE
     Indication: ACNE
     Dosage: ?          QUANTITY:1 TBSP;?
     Route: 061
     Dates: start: 20190617, end: 20190702

REACTIONS (3)
  - Foreign body sensation in eyes [None]
  - Liquid product physical issue [None]
  - Dry eye [None]

NARRATIVE: CASE EVENT DATE: 20190702
